FAERS Safety Report 15336332 (Version 3)
Quarter: 2018Q3

REPORT INFORMATION
  Report Type: Report from Study
  Country: US (occurrence: US)
  Receive Date: 20180830
  Receipt Date: 20180928
  Transmission Date: 20181010
  Serious: Yes (Hospitalization)
  Sender: FDA-Public Use
  Company Number: US-ACTELION-A-NJ2018-173729

PATIENT
  Age: 64 Year
  Sex: Male

DRUGS (1)
  1. OPSUMIT [Suspect]
     Active Substance: MACITENTAN
     Indication: PULMONARY ARTERIAL HYPERTENSION
     Dosage: 10 MG, QD
     Route: 048
     Dates: start: 20180403

REACTIONS (13)
  - Oedema [Recovered/Resolved]
  - Oxygen saturation decreased [Not Recovered/Not Resolved]
  - Abdominal cavity drainage [Unknown]
  - Oedema peripheral [Recovered/Resolved]
  - Pulmonary hypertension [Unknown]
  - Hepatic cirrhosis [Unknown]
  - Scrotal oedema [Not Recovered/Not Resolved]
  - Hospitalisation [Unknown]
  - Abdominal distension [Not Recovered/Not Resolved]
  - Dyspnoea [Recovered/Resolved]
  - Urinary tract infection [Recovered/Resolved]
  - Aspiration pleural cavity [Unknown]
  - Pain in extremity [Not Recovered/Not Resolved]

NARRATIVE: CASE EVENT DATE: 20180507
